FAERS Safety Report 14770421 (Version 1)
Quarter: 2018Q2

REPORT INFORMATION
  Report Type: Spontaneous
  Country: JP (occurrence: JP)
  Receive Date: 20180417
  Receipt Date: 20180417
  Transmission Date: 20180711
  Serious: Yes (Other)
  Sender: FDA-Public Use
  Company Number: PHHY2018JP067019

PATIENT
  Age: 65 Year
  Sex: Male

DRUGS (4)
  1. LEVODOPA/CARBIDOPA [Concomitant]
     Active Substance: CARBIDOPA\LEVODOPA
     Indication: PARKINSON^S DISEASE
     Dosage: 1,500 MG WERE DIVIDED INTO 10 DOSES
     Route: 048
     Dates: start: 2015
  2. ENTACAPONE. [Concomitant]
     Active Substance: ENTACAPONE
     Indication: PARKINSON^S DISEASE
     Route: 065
  3. ISTRADEFYLLINE [Concomitant]
     Active Substance: ISTRADEFYLLINE
     Indication: PARKINSON^S DISEASE
     Route: 065
  4. RIVASTACH [Suspect]
     Active Substance: RIVASTIGMINE
     Indication: PARKINSON^S DISEASE
     Dosage: 4.6 MG, QD PATCH 5 (CM2)
     Route: 062

REACTIONS (6)
  - Extrapyramidal disorder [Unknown]
  - Pollakiuria [Unknown]
  - Therapeutic response shortened [Unknown]
  - Off label use [Unknown]
  - Orthostatic hypotension [Unknown]
  - Parosmia [Unknown]

NARRATIVE: CASE EVENT DATE: 2010
